FAERS Safety Report 8710422 (Version 3)
Quarter: 2012Q4

REPORT INFORMATION
  Report Type: 
  Country: US (occurrence: US)
  Receive Date: 20120807
  Receipt Date: 20120921
  Transmission Date: 20130627
  Serious: Yes (Hospitalization, Disabling, Other)
  Sender: FDA-Public Use
  Company Number: US-009507513-1207USA007749

PATIENT
  Age: 57 Year
  Sex: Male
  Weight: 104.31 kg

DRUGS (14)
  1. VICTRELIS [Suspect]
     Dosage: 200 mg, tid
     Route: 048
     Dates: start: 20120627, end: 20120703
  2. REBETOL [Suspect]
     Dosage: 200 mg, UNK
     Route: 048
     Dates: start: 20120516
  3. PEGASYS [Suspect]
     Dosage: UNK
     Route: 058
     Dates: start: 20120516
  4. HYDRALAZINE [Concomitant]
     Dosage: 100 mg, UNK
     Route: 048
  5. IMDUR [Concomitant]
     Dosage: 120 mg, UNK
     Route: 048
  6. METOPROLOL TARTRATE [Concomitant]
     Dosage: 100 mg, UNK
     Route: 048
  7. PROCARDIA XL [Concomitant]
     Dosage: 30 mg, UNK
     Route: 048
  8. BABY ASPIRIN [Concomitant]
     Dosage: 81 mg, UNK
     Route: 048
  9. CALCIUM 500 [Concomitant]
     Dosage: 500 mg, UNK
     Route: 048
  10. FISH OIL [Concomitant]
     Route: 048
  11. CARDURA [Concomitant]
     Dosage: 2 mg, UNK
     Route: 048
  12. TRICOR [Concomitant]
     Dosage: 145 mg, UNK
     Route: 048
  13. LASIX [Concomitant]
     Dosage: 20 mg, UNK
     Route: 048
  14. VITAMIN B COMPLEX [Concomitant]
     Route: 048

REACTIONS (7)
  - Anaemia [Recovered/Resolved]
  - Coronary artery bypass [Unknown]
  - Cardiac disorder [Unknown]
  - Blood pressure decreased [Unknown]
  - Chest discomfort [Unknown]
  - Dyspnoea [Unknown]
  - Asthenia [Unknown]
